FAERS Safety Report 9997633 (Version 1)
Quarter: 2014Q1

REPORT INFORMATION
  Report Type: Spontaneous
  Country: US (occurrence: None)
  Receive Date: 20140304
  Receipt Date: 20140304
  Transmission Date: 20141002
  Serious: Yes (Hospitalization, Other)
  Sender: FDA-Public Use
  Company Number: RB-3937-2006

PATIENT
  Sex: Male
  Weight: 33 kg

DRUGS (1)
  1. SUBUTEX 8 MG [Suspect]
     Indication: DRUG DEPENDENCE
     Dosage: (8 MG BID TRANSPLACENTAL), (MOTHER TOOK 8 MG IN THE MORNING AND 4 MG AT NIGHT TRANSPLACENTAL)?
     Route: 064
     Dates: start: 20060804, end: 20060902

REACTIONS (2)
  - Foetal exposure during pregnancy [None]
  - Drug withdrawal syndrome neonatal [None]
